FAERS Safety Report 25997720 (Version 1)
Quarter: 2025Q4

REPORT INFORMATION
  Report Type: Spontaneous
  Country: US (occurrence: US)
  Receive Date: 20251104
  Receipt Date: 20251104
  Transmission Date: 20260117
  Serious: No
  Sender: CURRAX PHARMACEUTICALS
  Company Number: US-CURRAX PHARMACEUTICALS LLC-US-2025CUR000270

PATIENT
  Age: 61 Year
  Sex: Male

DRUGS (1)
  1. CONTRAVE [Suspect]
     Active Substance: BUPROPION HYDROCHLORIDE\NALTREXONE HYDROCHLORIDE
     Indication: Product used for unknown indication
     Dosage: STRENGTH 8/90 MG, 1 TAB DAILY
     Route: 048
     Dates: start: 20250202, end: 20250203

REACTIONS (2)
  - Urticaria [Unknown]
  - Lip swelling [Unknown]

NARRATIVE: CASE EVENT DATE: 20250202
